FAERS Safety Report 4738884-X (Version None)
Quarter: 2005Q3

REPORT INFORMATION
  Report Type: 
  Country: None (occurrence: None)
  Receive Date: 20050729
  Receipt Date: 20040915
  Transmission Date: 20060218
  Serious: Yes (Other)
  Sender: FDA-Public Use
  Company Number: USA-2002-005163

PATIENT
  Age: 58 Year
  Sex: Female

DRUGS (2)
  1. MAGNEVIST [Suspect]
     Indication: ANGIOGRAM
     Dosage: 20 ML, 1 DOSE, INTRAVENOUR
     Route: 042
     Dates: start: 20020922, end: 20020922
  2. CORTICOSTEROID NOS (CORTICOSTEROID NOS) [Concomitant]

REACTIONS (3)
  - CHEST DISCOMFORT [None]
  - SWOLLEN TONGUE [None]
  - URTICARIA [None]
